FAERS Safety Report 20528877 (Version 1)
Quarter: 2022Q1

REPORT INFORMATION
  Report Type: Spontaneous
  Country: US (occurrence: US)
  Receive Date: 20220228
  Receipt Date: 20220228
  Transmission Date: 20220424
  Serious: No
  Sender: FDA-Public Use
  Company Number: US-Cardinal Health 414-NPHS-AE-22-5

PATIENT
  Age: 73 Year
  Sex: Male
  Weight: 87.5 kg

DRUGS (3)
  1. UNSPECIFIED INGREDIENT [Suspect]
     Active Substance: UNSPECIFIED INGREDIENT
     Indication: Computerised tomogram
     Route: 042
     Dates: start: 20220209, end: 20220209
  2. UNSPECIFIED INGREDIENT [Concomitant]
     Active Substance: UNSPECIFIED INGREDIENT
     Indication: Computerised tomogram
     Route: 042
     Dates: start: 20220209, end: 20220209
  3. TECHNETIUM TC-99M MEDRONATE KIT [Suspect]
     Active Substance: TECHNETIUM TC-99M MEDRONATE
     Indication: Bone scan
     Route: 042
     Dates: start: 20220209, end: 20220209

REACTIONS (4)
  - Rash [Recovering/Resolving]
  - Urticaria [Unknown]
  - Pruritus [Recovering/Resolving]
  - Off label use [Recovered/Resolved]

NARRATIVE: CASE EVENT DATE: 20220209
